FAERS Safety Report 13345161 (Version 3)
Quarter: 2017Q4

REPORT INFORMATION
  Report Type: Report from Study
  Country: ES (occurrence: ES)
  Receive Date: 20170317
  Receipt Date: 20171229
  Transmission Date: 20180320
  Serious: Yes (Life-Threatening, Hospitalization, Other)
  Sender: FDA-Public Use
  Company Number: ES-009507513-1703ESP003161

PATIENT
  Age: 42 Year
  Sex: Male

DRUGS (3)
  1. PEGINTERFERON ALFA-2B [Interacting]
     Active Substance: PEGINTERFERON ALFA-2B
     Indication: HEPATITIS C
     Dosage: 180 MG, QW
  2. RIBAVIRIN. [Suspect]
     Active Substance: RIBAVIRIN
     Indication: HEPATITIS C
     Dosage: 1200 MG, QW
     Route: 048
  3. BOCEPREVIR [Interacting]
     Active Substance: BOCEPREVIR
     Indication: HEPATITIS C
     Dosage: 800 MG, Q8H

REACTIONS (6)
  - Neutropenia [Recovered/Resolved]
  - Haematotoxicity [Recovered/Resolved]
  - Drug interaction [Unknown]
  - Agranulocytosis [Recovered/Resolved]
  - Pancytopenia [Recovered/Resolved]
  - Infection [Unknown]
